FAERS Safety Report 8605607-3 (Version None)
Quarter: 2012Q3

REPORT INFORMATION
  Report Type: 
  Country: None (occurrence: None)
  Receive Date: 20120820
  Receipt Date: 20120816
  Transmission Date: 20120928
  Serious: No
  Sender: FDA-Public Use
  Company Number: US-TEVA-349700USA

PATIENT
  Sex: Female
  Weight: 63.56 kg

DRUGS (2)
  1. PLAN B ONE-STEP [Suspect]
     Dosage: 1.5 MILLIGRAM DAILY;
     Route: 048
     Dates: start: 20120813, end: 20120813
  2. PLAN B ONE-STEP [Suspect]
     Indication: POST COITAL CONTRACEPTION
     Dosage: 1.5 MILLIGRAM DAILY;
     Route: 048
     Dates: start: 20120719, end: 20120719

REACTIONS (6)
  - HEADACHE [None]
  - PELVIC PAIN [None]
  - MUSCULOSKELETAL DISCOMFORT [None]
  - POLLAKIURIA [None]
  - FATIGUE [None]
  - BREAST TENDERNESS [None]
